FAERS Safety Report 19455526 (Version 1)
Quarter: 2021Q2

REPORT INFORMATION
  Report Type: Spontaneous
  Country: US (occurrence: US)
  Receive Date: 20210623
  Receipt Date: 20210623
  Transmission Date: 20210717
  Serious: No
  Sender: FDA-Public Use
  Company Number: None

PATIENT
  Age: 85 Year
  Sex: Male
  Weight: 96.16 kg

DRUGS (17)
  1. BIMATOPROST. [Concomitant]
     Active Substance: BIMATOPROST
  2. SIMETHICONE (DIMETHICONE) [Concomitant]
     Active Substance: DIMETHICONE
  3. PROBIOTIC [Concomitant]
     Active Substance: PROBIOTICS NOS
  4. WARFARIN [Concomitant]
     Active Substance: WARFARIN
  5. IMATINIB MESYLATE. [Suspect]
     Active Substance: IMATINIB MESYLATE
     Indication: POLYCYTHAEMIA VERA
     Route: 048
     Dates: start: 20161104, end: 20210623
  6. LACTULOSE. [Concomitant]
     Active Substance: LACTULOSE
  7. AMLODIPINE BESYLATE. [Concomitant]
     Active Substance: AMLODIPINE BESYLATE
  8. FOLIC ACID. [Concomitant]
     Active Substance: FOLIC ACID
  9. FERROUS SULFATE. [Concomitant]
     Active Substance: FERROUS SULFATE
  10. VITAMIN D [Concomitant]
     Active Substance: VITAMIN D NOS
  11. MAGNESIUM OXIDE. [Concomitant]
     Active Substance: MAGNESIUM OXIDE
  12. SIMVASTATIN. [Concomitant]
     Active Substance: SIMVASTATIN
  13. AMOXICILLIN. [Concomitant]
     Active Substance: AMOXICILLIN
  14. HYDROXYUREA. [Concomitant]
     Active Substance: HYDROXYUREA
  15. IRBESARTAN. [Concomitant]
     Active Substance: IRBESARTAN
  16. SERTRALINE HCL [Concomitant]
     Active Substance: SERTRALINE HYDROCHLORIDE
  17. TYLENOL [Concomitant]
     Active Substance: ACETAMINOPHEN

REACTIONS (1)
  - Cytopenia [None]

NARRATIVE: CASE EVENT DATE: 20210623
